FAERS Safety Report 6296109-0 (Version None)
Quarter: 2009Q3

REPORT INFORMATION
  Report Type: 
  Country: None (occurrence: None)
  Receive Date: 20090804
  Receipt Date: 20090701
  Transmission Date: 20100115
  Serious: No
  Sender: FDA-Public Use
  Company Number: US-BAYER-200912190BCC

PATIENT
  Age: 68 Year
  Sex: Female
  Weight: 86 kg

DRUGS (2)
  1. ALEVE (CAPLET) [Suspect]
     Indication: BACK PAIN
     Dosage: TOTAL DAILY DOSE: 220 MG  UNIT DOSE: 220 MG
     Route: 048
     Dates: start: 20090401, end: 20090628
  2. ASPIRIN [Suspect]
     Indication: BACK PAIN
     Dosage: CONSUMER STATED SHE USED 1 OR 2 CAPLETS
     Route: 048

REACTIONS (2)
  - CONTUSION [None]
  - NAUSEA [None]
